FAERS Safety Report 7638320-X (Version None)
Quarter: 2011Q3

REPORT INFORMATION
  Report Type: 
  Country: None (occurrence: None)
  Receive Date: 20110727
  Receipt Date: 20110727
  Transmission Date: 20111222
  Serious: Yes (Other)
  Sender: FDA-Public Use
  Company Number: None

PATIENT
  Sex: Female
  Weight: 90.718 kg

DRUGS (1)
  1. SERTRALINE HYDROCHLORIDE [Suspect]
     Indication: POSTPARTUM DEPRESSION
     Dosage: 25 MG
     Route: 048
     Dates: start: 20110713, end: 20110718

REACTIONS (2)
  - HEADACHE [None]
  - VISION BLURRED [None]
